FAERS Safety Report 17712867 (Version 1)
Quarter: 2020Q2

REPORT INFORMATION
  Report Type: Report from Study
  Country: ES (occurrence: ES)
  Receive Date: 20200427
  Receipt Date: 20200427
  Transmission Date: 20200714
  Serious: Yes (Hospitalization)
  Sender: FDA-Public Use
  Company Number: ES-PFIZER INC-2020162345

PATIENT
  Age: 71 Year
  Sex: Female
  Weight: 56.7 kg

DRUGS (11)
  1. FLUOROURACIL 5 FU [Suspect]
     Active Substance: FLUOROURACIL
     Indication: COLORECTAL CANCER
     Dosage: 3380 MG, CYCLIC (EVERY TWO WEEKS)
     Route: 042
     Dates: start: 20200102, end: 20200102
  2. FLUOROURACIL 5 FU [Suspect]
     Active Substance: FLUOROURACIL
     Dosage: 3380 MG, CYCLIC (EVERY TWO WEEKS)
     Route: 042
     Dates: start: 20200212, end: 20200212
  3. AFLIBERCEPT [Suspect]
     Active Substance: AFLIBERCEPT
     Dosage: 242.8 MG, CYCLIC (EVERY TWO WEEKS)
     Route: 042
     Dates: start: 20200212, end: 20200212
  4. IRINOTECAN HCL [Suspect]
     Active Substance: IRINOTECAN HYDROCHLORIDE
     Dosage: 253.5 MG, CYCLIC (EVERY TWO WEEK)
     Route: 042
     Dates: start: 20200212, end: 20200212
  5. IRINOTECAN HCL [Suspect]
     Active Substance: IRINOTECAN HYDROCHLORIDE
     Indication: COLORECTAL CANCER
     Dosage: 253.5 MG, CYCLIC (EVERY TWO WEEKS)
     Route: 042
     Dates: start: 20200102, end: 20200102
  6. FLUOROURACIL 5 FU [Suspect]
     Active Substance: FLUOROURACIL
     Dosage: 507 MG, CYCLIC (EVERY TWO WEEKS)
     Route: 040
     Dates: start: 20200102, end: 20200102
  7. FLUOROURACIL 5 FU [Suspect]
     Active Substance: FLUOROURACIL
     Dosage: 507 MG, CYCLIC (EVERY TWO WEEKS)
     Route: 040
     Dates: start: 20200212, end: 20200212
  8. FOLINIC ACID [Suspect]
     Active Substance: LEUCOVORIN
     Indication: COLORECTAL CANCER
     Dosage: 676 MG, CYCLIC (EVERY TWO WEEKS)
     Route: 042
     Dates: start: 20200102, end: 20200102
  9. AFLIBERCEPT [Suspect]
     Active Substance: AFLIBERCEPT
     Indication: COLORECTAL CANCER
     Dosage: 242.8 MG, CYCLIC (EVERY TWO WEEKS)
     Route: 042
     Dates: start: 20200102, end: 20200102
  10. FOLINIC ACID [Suspect]
     Active Substance: LEUCOVORIN
     Dosage: 676 MG, CYCLIC (EVERY TWO WEEKS)
     Route: 042
     Dates: start: 20200212, end: 20200212
  11. ENALAPRIL [Concomitant]
     Active Substance: ENALAPRIL
     Indication: HYPERTENSION
     Dosage: 5 MG
     Route: 048

REACTIONS (1)
  - Respiratory tract infection [Recovered/Resolved]

NARRATIVE: CASE EVENT DATE: 20200305
